FAERS Safety Report 10486062 (Version 1)
Quarter: 2014Q3

REPORT INFORMATION
  Report Type: Spontaneous
  Country: US (occurrence: None)
  Receive Date: 20140930
  Receipt Date: 20140930
  Transmission Date: 20150326
  Serious: Yes (Other)
  Sender: FDA-Public Use
  Company Number: None

PATIENT
  Age: 37 Year
  Sex: Female
  Weight: 166.02 kg

DRUGS (1)
  1. SAPHRIS [Suspect]
     Active Substance: ASENAPINE MALEATE
     Indication: SCHIZOAFFECTIVE DISORDER BIPOLAR TYPE
     Dosage: 10 MG SUBLINGUAL TAB ONCE DAILY TAKEN UNDER THE TONGUE
     Route: 060
     Dates: start: 20140803, end: 20140915

REACTIONS (1)
  - Alopecia [None]

NARRATIVE: CASE EVENT DATE: 20140915
